FAERS Safety Report 5573903-2 (Version None)
Quarter: 2007Q4

REPORT INFORMATION
  Report Type: 
  Country: None (occurrence: None)
  Receive Date: 20071220
  Receipt Date: 20071205
  Transmission Date: 20080405
  Serious: Yes (Disabling)
  Sender: FDA-Public Use
  Company Number: OSCN-PR-0712S-0493

PATIENT
  Sex: Female

DRUGS (3)
  1. OMNISCAN [Suspect]
     Dosage: SINGLE DOSE, I.V., SINGLE DOSE, I.V., SINGLE DOSE, I.V.,
     Route: 042
     Dates: start: 20060123, end: 20060123
  2. OMNISCAN [Suspect]
     Dosage: SINGLE DOSE, I.V., SINGLE DOSE, I.V., SINGLE DOSE, I.V.,
     Route: 042
     Dates: start: 20060124, end: 20060124
  3. OMNISCAN [Suspect]
     Dosage: SINGLE DOSE, I.V., SINGLE DOSE, I.V., SINGLE DOSE, I.V.,
     Route: 042
     Dates: start: 20060315, end: 20060315

REACTIONS (1)
  - NEPHROGENIC SYSTEMIC FIBROSIS [None]
